FAERS Safety Report 4385307-9 (Version None)
Quarter: 2004Q2

REPORT INFORMATION
  Report Type: 
  Country: None (occurrence: None)
  Receive Date: 20040624
  Receipt Date: 20040624
  Transmission Date: 20050107
  Serious: Yes (Life-Threatening, Disabling)
  Sender: FDA-Public Use
  Company Number: None

PATIENT
  Sex: Male
  Weight: 3.3566 kg

DRUGS (5)
  1. CYTOTEC [Suspect]
     Indication: INDUCED LABOUR
     Dosage: 1 TAB VAGINALLY
     Route: 067
     Dates: start: 20000216
  2. PRENATAL MULTIVITAMINS [Concomitant]
  3. MAGNESIUM SULFATE [Concomitant]
  4. HYDRALAZINE [Concomitant]
  5. EPINEPHRINE [Concomitant]

REACTIONS (7)
  - ASPHYXIA [None]
  - CAESAREAN SECTION [None]
  - DRUG EXPOSURE DURING PREGNANCY [None]
  - HYPOXIC ENCEPHALOPATHY [None]
  - ISCHAEMIA [None]
  - NEONATAL DISORDER [None]
  - OFF LABEL USE [None]
